FAERS Safety Report 4525614-X (Version None)
Quarter: 2004Q4

REPORT INFORMATION
  Report Type: 
  Country: None (occurrence: None)
  Receive Date: 20041116
  Receipt Date: 20040916
  Transmission Date: 20050328
  Serious: No
  Sender: FDA-Public Use
  Company Number: S04-USA-06196-01

PATIENT
  Sex: Male

DRUGS (2)
  1. NAMENDA [Suspect]
     Indication: MULTIPLE SCLEROSIS
     Dosage: 5 MG BID PO
     Route: 048
  2. NAMENDA [Suspect]
     Indication: MULTIPLE SCLEROSIS
     Dosage: 5 MG QD PO
     Route: 048

REACTIONS (1)
  - ENERGY INCREASED [None]
